FAERS Safety Report 4428466-1 (Version None)
Quarter: 2004Q3

REPORT INFORMATION
  Report Type: 
  Country: None (occurrence: None)
  Receive Date: 20040816
  Receipt Date: 20040805
  Transmission Date: 20050211
  Serious: Yes (Hospitalization)
  Sender: FDA-Public Use
  Company Number: 200404937

PATIENT
  Age: 49 Year
  Sex: Female
  Weight: 81.1939 kg

DRUGS (15)
  1. BOTOX [Suspect]
     Indication: MUSCLE SPASTICITY
     Dosage: 200 UNITS ONCE IM
     Route: 030
     Dates: start: 20040205, end: 20040205
  2. BOTOX [Suspect]
     Indication: MUSCLE SPASTICITY
     Dosage: 200 UNITS ONCE IM
     Route: 030
     Dates: start: 20040603, end: 20040603
  3. SYNTHROID [Concomitant]
  4. ZOLOFT [Concomitant]
  5. TRAZODONE [Concomitant]
  6. ZANAFLEX [Concomitant]
  7. WARFARIN SODIUM [Concomitant]
  8. TYLENOL [Concomitant]
  9. NEURONTIN [Concomitant]
  10. SCOPOLAMINE [Concomitant]
  11. ESTROVEN [Concomitant]
  12. MECLIZINE [Concomitant]
  13. DARVOCET-N 100 [Concomitant]
  14. HYDROCODONE [Concomitant]
  15. CELEBREX [Concomitant]

REACTIONS (4)
  - DEHYDRATION [None]
  - DIARRHOEA [None]
  - NAUSEA [None]
  - VOMITING [None]
